FAERS Safety Report 15036902 (Version 1)
Quarter: 2018Q2

REPORT INFORMATION
  Report Type: Spontaneous
  Country: DE (occurrence: DE)
  Receive Date: 20180620
  Receipt Date: 20180620
  Transmission Date: 20180711
  Serious: Yes (Hospitalization)
  Sender: FDA-Public Use
  Company Number: DE-TEVA-2018-DE-911780

PATIENT
  Age: 51 Year
  Sex: Male
  Weight: 99 kg

DRUGS (5)
  1. IBUPROFEN. [Suspect]
     Active Substance: IBUPROFEN
     Dosage: 800 MG, BEDARF
  2. ETORICOXIB [Suspect]
     Active Substance: ETORICOXIB
     Dosage: 90 MG, NEED 1-2 / W
  3. RAMIPRIL. [Concomitant]
     Active Substance: RAMIPRIL
     Dosage: NK MG, NK
     Route: 065
  4. METFORMIN [Concomitant]
     Active Substance: METFORMIN HYDROCHLORIDE
     Dosage: 850 MG, 1-0-1-0
  5. CARVEDILOL. [Concomitant]
     Active Substance: CARVEDILOL
     Dosage: 12.5 MG, 1-0-0-0

REACTIONS (5)
  - Vomiting [Unknown]
  - Dizziness [Unknown]
  - Chest discomfort [Unknown]
  - Hypertension [Unknown]
  - Nausea [Unknown]
